FAERS Safety Report 9563779 (Version 2)
Quarter: 2014Q1

REPORT INFORMATION
  Report Type: Spontaneous
  Country: US (occurrence: None)
  Receive Date: 20130926
  Receipt Date: 20140306
  Transmission Date: 20141002
  Serious: Yes (Hospitalization, Other)
  Sender: FDA-Public Use
  Company Number: 2013-US-000793

PATIENT
  Age: 36 Year
  Sex: Female
  Weight: 97.5 kg

DRUGS (12)
  1. XYREM [Suspect]
     Indication: NARCOLEPSY
     Route: 048
     Dates: start: 20080828, end: 200809
  2. XYREM [Suspect]
     Indication: CATAPLEXY
     Route: 048
     Dates: start: 20080828, end: 200809
  3. OMEPRAZOLE (OMEPRAZOLE) [Concomitant]
  4. CYMBALTA [Concomitant]
  5. GABAPENTIN (GABAPENTIN) [Concomitant]
  6. RITALN (METHYLPHENIDATE HYDROCHLORIDE) [Concomitant]
  7. VITAMIN D (ERGOCALCIFEROL) [Concomitant]
  8. SYMBICORT [Concomitant]
  9. LEVOBUNOLOL HCL (LEVOBUNDOLOL HYDROCHLORIDE) [Concomitant]
  10. ALBUTEROL (SALBUTAMOL SULFATE) [Concomitant]
  11. TRAZODONE HCL (TRAZODONE HYDROCHLORIDE) [Concomitant]
  12. LIDODERM (LIDOCAINE) [Concomitant]

REACTIONS (8)
  - Neck surgery [None]
  - Oesophageal ulcer [None]
  - Ovarian cyst [None]
  - Tooth extraction [None]
  - Colonoscopy [None]
  - Endoscopy [None]
  - Therapeutic response decreased [None]
  - Sleep apnoea syndrome [None]
